FAERS Safety Report 22273059 (Version 1)
Quarter: 2023Q2

REPORT INFORMATION
  Report Type: Report from Study
  Country: CA (occurrence: CA)
  Receive Date: 20230502
  Receipt Date: 20230502
  Transmission Date: 20230721
  Serious: Yes (Other)
  Sender: FDA-Public Use
  Company Number: CA-TAKEDA-2022TUS085896

PATIENT
  Age: 21 Year
  Sex: Male

DRUGS (4)
  1. VEDOLIZUMAB [Suspect]
     Active Substance: VEDOLIZUMAB
     Indication: Colitis ulcerative
     Dosage: 300 MILLIGRAM
     Route: 042
     Dates: start: 20221006
  2. PENTASA [Concomitant]
     Active Substance: MESALAMINE
     Dosage: 0.5 GRAM, QID
     Dates: start: 202204
  3. PREDNISONE [Concomitant]
     Active Substance: PREDNISONE
     Dosage: UNK, QD
     Dates: start: 20220814
  4. Cortiment [Concomitant]
     Dosage: 9 MILLIGRAM, QD
     Dates: start: 20220814

REACTIONS (5)
  - Haematochezia [Recovering/Resolving]
  - Mucous stools [Recovering/Resolving]
  - Diarrhoea [Recovering/Resolving]
  - Asthenia [Recovering/Resolving]
  - Abdominal pain [Recovering/Resolving]
